FAERS Safety Report 7019666-5 (Version None)
Quarter: 2010Q3

REPORT INFORMATION
  Report Type: 
  Country: None (occurrence: None)
  Receive Date: 20100928
  Receipt Date: 20100928
  Transmission Date: 20110219
  Serious: Yes (Other)
  Sender: FDA-Public Use
  Company Number: None

PATIENT
  Age: 63 Year
  Sex: Male
  Weight: 72.5755 kg

DRUGS (4)
  1. IC PREVASTATIN 20 MG, APOTEX USA , INC. [Suspect]
     Indication: BLOOD CHOLESTEROL INCREASED
     Dosage: 20 MG 1 X DAY PO
     Route: 048
     Dates: start: 20070101, end: 20080630
  2. IC PREVASTATIN 10 MG, APOTEX USA , INC. [Suspect]
     Indication: BLOOD CHOLESTEROL INCREASED
     Dosage: 10 MG 1 X DAY PO
     Route: 048
     Dates: start: 20090302, end: 20090315
  3. SYNTHROID [Concomitant]
  4. ZOLOFT [Concomitant]

REACTIONS (14)
  - ARTHRALGIA [None]
  - ASTHENIA [None]
  - CARDIOVASCULAR DISORDER [None]
  - DEEP VEIN THROMBOSIS [None]
  - FATIGUE [None]
  - FEELING ABNORMAL [None]
  - GAIT DISTURBANCE [None]
  - MUSCLE ATROPHY [None]
  - MUSCLE SPASMS [None]
  - MUSCULAR WEAKNESS [None]
  - MUSCULOSKELETAL CHEST PAIN [None]
  - SLEEP DISORDER [None]
  - TENDON DISORDER [None]
  - THROMBOSIS [None]
